FAERS Safety Report 15084332 (Version 1)
Quarter: 2018Q2

REPORT INFORMATION
  Report Type: Spontaneous
  Country: NO (occurrence: NO)
  Receive Date: 20180628
  Receipt Date: 20180628
  Transmission Date: 20180711
  Serious: Yes (Death, Hospitalization, Other)
  Sender: FDA-Public Use
  Company Number: NO-PFIZER INC-2018261086

PATIENT
  Age: 80 Year
  Sex: Female

DRUGS (9)
  1. BURINEX [Suspect]
     Active Substance: BUMETANIDE
     Indication: DIURETIC THERAPY
     Dosage: 0.5 MG, 1X/DAY
  2. PRADAXA [Suspect]
     Active Substance: DABIGATRAN ETEXILATE MESYLATE
     Indication: ATRIAL FIBRILLATION
     Dosage: 150 MG, EVERY 12 HOURS
     Route: 048
  3. METOPROLOL TARTRATE. [Suspect]
     Active Substance: METOPROLOL TARTRATE
     Indication: ATRIAL FIBRILLATION
     Dosage: 50 MG, EVERY 12 HOURS
     Route: 048
  4. ATROVENT [Suspect]
     Active Substance: IPRATROPIUM BROMIDE
     Indication: CHRONIC OBSTRUCTIVE PULMONARY DISEASE
     Dosage: 1 DF, EVERY 8 HOURS
     Route: 055
  5. LIPITOR [Suspect]
     Active Substance: ATORVASTATIN CALCIUM
     Indication: HYPERLIPIDAEMIA
     Dosage: 40 MG, 1X/DAY
     Route: 048
  6. VENTOLINE /00139501/ [Suspect]
     Active Substance: ALBUTEROL
     Indication: CHRONIC OBSTRUCTIVE PULMONARY DISEASE
     Dosage: 0.1 MG, EVERY 8 HOURS
     Route: 055
  7. PREDNISOLON ^DLF^ [Suspect]
     Active Substance: PREDNISOLONE
     Dosage: 5 MG, EVERY 12 HOURS
     Route: 048
  8. METOPROLOL TARTRATE. [Suspect]
     Active Substance: METOPROLOL TARTRATE
     Indication: HYPERTENSION
  9. SYMBICORT [Suspect]
     Active Substance: BUDESONIDE\FORMOTEROL FUMARATE DIHYDRATE
     Indication: CHRONIC OBSTRUCTIVE PULMONARY DISEASE
     Dosage: UNK, EVERY 12 HOURS
     Route: 055

REACTIONS (2)
  - Renal failure [Unknown]
  - Gastrointestinal haemorrhage [Fatal]

NARRATIVE: CASE EVENT DATE: 20180106
